FAERS Safety Report 22710050 (Version 2)
Quarter: 2025Q2

REPORT INFORMATION
  Report Type: Spontaneous
  Country: DE (occurrence: DE)
  Receive Date: 20230717
  Receipt Date: 20250528
  Transmission Date: 20250717
  Serious: Yes (Other)
  Sender: AUROBINDO
  Company Number: DE-MYLANLABS-2023M1069867

PATIENT
  Age: 31 Year
  Sex: Male

DRUGS (3)
  1. TENOFOVIR DISOPROXIL [Suspect]
     Active Substance: TENOFOVIR DISOPROXIL
     Indication: Prophylaxis against HIV infection
     Route: 065
  2. EMTRICITABINE [Suspect]
     Active Substance: EMTRICITABINE
     Indication: Prophylaxis against HIV infection
     Route: 065
  3. PREDNISOLONE [Concomitant]
     Active Substance: PREDNISOLONE
     Indication: Herpes simplex
     Route: 065

REACTIONS (9)
  - Monkeypox [Unknown]
  - Superficial inflammatory dermatosis [Unknown]
  - Rash [Unknown]
  - Lymphadenitis [Unknown]
  - Dysphagia [Unknown]
  - Pustule [Unknown]
  - Chills [Unknown]
  - Anorectal disorder [Unknown]
  - Pyrexia [Unknown]
